FAERS Safety Report 6690291-9 (Version None)
Quarter: 2010Q2

REPORT INFORMATION
  Report Type: 
  Country: None (occurrence: None)
  Receive Date: 20100421
  Receipt Date: 20100413
  Transmission Date: 20101027
  Serious: Yes (Hospitalization)
  Sender: FDA-Public Use
  Company Number: RO-AMGEN-QUU397517

PATIENT
  Sex: Female
  Weight: 48 kg

DRUGS (3)
  1. ARANESP [Suspect]
     Indication: ANAEMIA OF MALIGNANT DISEASE
     Route: 058
     Dates: start: 20091211, end: 20091222
  2. UNSPECIFIED MEDICATION [Concomitant]
     Route: 048
     Dates: start: 20090701
  3. GINGKO BILOBA [Concomitant]
     Route: 048
     Dates: start: 20090701

REACTIONS (3)
  - PELVIC VENOUS THROMBOSIS [None]
  - PLATELET COUNT DECREASED [None]
  - THROMBOPHLEBITIS SUPERFICIAL [None]
